FAERS Safety Report 6164419-3 (Version None)
Quarter: 2009Q2

REPORT INFORMATION
  Report Type: 
  Country: None (occurrence: None)
  Receive Date: 20090421
  Receipt Date: 20090415
  Transmission Date: 20091009
  Serious: Yes (Life-Threatening, Other)
  Sender: FDA-Public Use
  Company Number: 2280705-2009-00007

PATIENT
  Age: 15 Month
  Sex: Female
  Weight: 6.8 kg

DRUGS (2)
  1. BABY ORAJET TEETHING PAIN MEDICINE [Suspect]
     Indication: GINGIVAL PAIN
     Dosage: NMT 4X  DAILY; TOPICAL
     Route: 061
     Dates: start: 20090301
  2. LIDOCAINE 1% [Concomitant]

REACTIONS (1)
  - METHAEMOGLOBINAEMIA [None]
